FAERS Safety Report 6188814-1 (Version None)
Quarter: 2009Q2

REPORT INFORMATION
  Report Type: 
  Country: None (occurrence: None)
  Receive Date: 20090513
  Receipt Date: 20090505
  Transmission Date: 20091009
  Serious: Yes (Other)
  Sender: FDA-Public Use
  Company Number: US-JNJCH-2009012632

PATIENT
  Age: 69 Year
  Sex: Female
  Weight: 77.6 kg

DRUGS (6)
  1. BENADRYL [Suspect]
     Indication: PRURITUS
     Dosage: TEXT:UNSPECIFIED 2 X A DAY
     Route: 048
  2. BENADRYL [Suspect]
     Indication: EYE PRURITUS
  3. BENADRYL [Suspect]
     Indication: HYPERSENSITIVITY
  4. BENICAR [Suspect]
     Indication: BLOOD PRESSURE
     Route: 048
  5. LIPITOR [Concomitant]
     Indication: BLOOD CHOLESTEROL INCREASED
     Route: 048
  6. SYNTHROID [Concomitant]
     Indication: THYROID DISORDER
     Route: 048

REACTIONS (2)
  - BLOOD PRESSURE DECREASED [None]
  - SOMNOLENCE [None]
